FAERS Safety Report 16616330 (Version 1)
Quarter: 2019Q3

REPORT INFORMATION
  Report Type: Spontaneous
  Country: US (occurrence: US)
  Receive Date: 20190723
  Receipt Date: 20190723
  Transmission Date: 20191004
  Serious: No
  Sender: FDA-Public Use
  Company Number: None

PATIENT
  Age: 73 Year
  Sex: Female
  Weight: 50.3 kg

DRUGS (1)
  1. RITUXAN [Suspect]
     Active Substance: RITUXIMAB
     Indication: CHRONIC LYMPHOCYTIC LEUKAEMIA
     Dosage: ?          OTHER FREQUENCY:MONTHLY;?
     Route: 041

REACTIONS (6)
  - Gait disturbance [None]
  - Chills [None]
  - Hypotension [None]
  - Refusal of treatment by patient [None]
  - Infusion related reaction [None]
  - Feeling cold [None]

NARRATIVE: CASE EVENT DATE: 20190722
